FAERS Safety Report 6653233-8 (Version None)
Quarter: 2010Q1

REPORT INFORMATION
  Report Type: 
  Country: None (occurrence: None)
  Receive Date: 20100326
  Receipt Date: 20100315
  Transmission Date: 20100710
  Serious: Yes (Hospitalization)
  Sender: FDA-Public Use
  Company Number: US-BRISTOL-MYERS SQUIBB COMPANY-15019334

PATIENT
  Age: 55 Year
  Sex: Female
  Weight: 91 kg

DRUGS (4)
  1. TRAZODONE HCL [Suspect]
  2. ZIPRASIDONE HCL [Suspect]
     Dosage: 150 CAPS TAKEN AS TOTAL OF 40MG CAPS
  3. FLUOXETINE [Suspect]
     Dosage: FEW OF 20MG CAPS IS TAKEN.
  4. BENZTROPINE MESYLATE [Suspect]

REACTIONS (10)
  - DRY MOUTH [None]
  - HYPOKALAEMIA [None]
  - HYPOMAGNESAEMIA [None]
  - MYDRIASIS [None]
  - NAUSEA [None]
  - OVERDOSE [None]
  - SUICIDE ATTEMPT [None]
  - TORSADE DE POINTES [None]
  - VENTRICULAR FIBRILLATION [None]
  - VOMITING [None]
